FAERS Safety Report 19589836 (Version 1)
Quarter: 2021Q3

REPORT INFORMATION
  Report Type: Spontaneous
  Country: US (occurrence: US)
  Receive Date: 20210721
  Receipt Date: 20210721
  Transmission Date: 20211014
  Serious: No
  Sender: FDA-Public Use
  Company Number: US-AMNEAL PHARMACEUTICALS-2021-AMRX-01364

PATIENT
  Sex: Female

DRUGS (2)
  1. CHLORTHALIDONE. [Suspect]
     Active Substance: CHLORTHALIDONE
     Indication: HYPERTENSION
     Dosage: UNK
     Route: 048
     Dates: start: 20210329
  2. CHLORTHALIDONE. [Suspect]
     Active Substance: CHLORTHALIDONE
     Indication: FLUID RETENTION
     Dosage: HALF TABLET
     Route: 048
     Dates: start: 20210420

REACTIONS (4)
  - Throat tightness [Recovered/Resolved]
  - Feeling abnormal [Recovered/Resolved]
  - Sensation of foreign body [Recovered/Resolved]
  - Dizziness [Recovered/Resolved]

NARRATIVE: CASE EVENT DATE: 20210329
